FAERS Safety Report 4388339-X (Version None)
Quarter: 2004Q3

REPORT INFORMATION
  Report Type: 
  Country: None (occurrence: None)
  Receive Date: 20040701
  Receipt Date: 20040618
  Transmission Date: 20050211
  Serious: Yes (Other)
  Sender: FDA-Public Use
  Company Number: JP-MERCK-0406USA01945

PATIENT

DRUGS (2)
  1. PEPCID RPD [Suspect]
     Route: 048
  2. HERBS (UNSPECIFIED) [Suspect]
     Route: 048

REACTIONS (1)
  - RHABDOMYOLYSIS [None]
